FAERS Safety Report 6656447-6 (Version None)
Quarter: 2010Q1

REPORT INFORMATION
  Report Type: 
  Country: None (occurrence: None)
  Receive Date: 20100329
  Receipt Date: 20100325
  Transmission Date: 20100710
  Serious: Yes (Death, Other)
  Sender: FDA-Public Use
  Company Number: BR-B.I. PHARMACEUTICALS,INC./RIDGEFIELD-2010-BR-00264BR

PATIENT
  Sex: Female

DRUGS (6)
  1. ATENSINA [Suspect]
     Indication: HYPERTENSION
     Dosage: NR
     Dates: start: 20081201
  2. OLMETEC HCT [Suspect]
     Indication: HYPERTENSION
     Dosage: RT
     Dates: start: 20081201
  3. NORVASC [Suspect]
     Indication: HYPERTENSION
     Dosage: 5 MG
     Dates: start: 20081201
  4. HYDROCHLOROTHIAZIDE [Suspect]
     Indication: HYPERTENSION
     Dosage: NR
     Dates: start: 20081201
  5. ATENOLOL [Suspect]
     Indication: HYPERTENSION
     Dosage: NR
     Dates: start: 20081201
  6. SIMVASTATIN [Concomitant]
     Indication: BLOOD CHOLESTEROL INCREASED
     Dosage: NR

REACTIONS (8)
  - ASTHENIA [None]
  - BLOOD PRESSURE INCREASED [None]
  - CARDIAC DISORDER [None]
  - DYSPNOEA [None]
  - ILEUS PARALYTIC [None]
  - SEPSIS [None]
  - SWELLING [None]
  - VOMITING [None]
